FAERS Safety Report 4596259-0 (Version None)
Quarter: 2005Q1

REPORT INFORMATION
  Report Type: 
  Country: None (occurrence: None)
  Receive Date: 20050302
  Receipt Date: 20050222
  Transmission Date: 20050727
  Serious: Yes (Death)
  Sender: FDA-Public Use
  Company Number: JP-JNJFOC-20040903177

PATIENT
  Sex: Female

DRUGS (19)
  1. DUROTEP [Suspect]
     Route: 062
     Dates: start: 20030822, end: 20040725
  2. DUROTEP [Suspect]
     Route: 062
     Dates: start: 20030822, end: 20040725
  3. DUROTEP [Suspect]
     Route: 062
     Dates: start: 20030822, end: 20040725
  4. DUROTEP [Suspect]
     Route: 062
     Dates: start: 20030822, end: 20040725
  5. DUROTEP [Suspect]
     Route: 062
     Dates: start: 20030822, end: 20040725
  6. DUROTEP [Suspect]
     Route: 062
     Dates: start: 20030822, end: 20040725
  7. DUROTEP [Suspect]
     Route: 062
     Dates: start: 20030822, end: 20040725
  8. DUROTEP [Suspect]
     Indication: CANCER PAIN
     Route: 062
     Dates: start: 20030822, end: 20040725
  9. SENNOSIDE [Concomitant]
     Indication: CONSTIPATION
     Route: 049
     Dates: start: 20030717, end: 20040725
  10. MORPHINE HYDROCHLORIDE [Concomitant]
     Indication: CANCER PAIN
     Dosage: 5 MG TO 40 MG AS NEEDED
     Route: 049
     Dates: start: 20030818, end: 20040725
  11. CARBOPLATIN [Concomitant]
     Indication: DRUG USE FOR UNKNOWN INDICATION
     Route: 041
  12. CYCLOPHOSPHAMIDE [Concomitant]
     Indication: DRUG USE FOR UNKNOWN INDICATION
  13. PIRARUBICIN HYDROCHLORIDE [Concomitant]
     Indication: DRUG USE FOR UNKNOWN INDICATION
     Route: 041
  14. ETOPOSIDE [Concomitant]
     Route: 049
  15. ETOPOSIDE [Concomitant]
     Route: 049
  16. ETOPOSIDE [Concomitant]
     Indication: DRUG USE FOR UNKNOWN INDICATION
     Route: 049
  17. DOXIFLURIDINE [Concomitant]
     Indication: DRUG USE FOR UNKNOWN INDICATION
     Route: 049
  18. MORPHINE HYDROCHLORIDE [Concomitant]
     Route: 041
  19. NEDAPLATIN [Concomitant]
     Indication: DRUG USE FOR UNKNOWN INDICATION

REACTIONS (4)
  - ANAPHYLACTOID REACTION [None]
  - APPLICATION SITE REACTION [None]
  - GASTROINTESTINAL PERFORATION [None]
  - PERITONITIS [None]
